FAERS Safety Report 16688542 (Version 1)
Quarter: 2019Q3

REPORT INFORMATION
  Report Type: Spontaneous
  Country: US (occurrence: US)
  Receive Date: 20190809
  Receipt Date: 20190809
  Transmission Date: 20191004
  Serious: Yes (Other)
  Sender: FDA-Public Use
  Company Number: US-NAPPMUNDI-USA-2019-0146751

PATIENT
  Age: 35 Year
  Sex: Female

DRUGS (1)
  1. BUPRENORPHINE (SIMILAR TO NDA 21-306) [Suspect]
     Active Substance: BUPRENORPHINE
     Indication: OCCIPITAL NEURALGIA
     Dosage: 7.5 MCG/HR, WEEKLY
     Route: 062
     Dates: start: 201902, end: 20190331

REACTIONS (12)
  - Dysstasia [Recovered/Resolved]
  - Drug withdrawal syndrome [Not Recovered/Not Resolved]
  - Dizziness [Recovered/Resolved]
  - Incorrect dose administered by product [Recovered/Resolved]
  - Overdose [Recovered/Resolved]
  - Hyperhidrosis [Recovered/Resolved]
  - Pyrexia [Recovered/Resolved]
  - Gait inability [Recovered/Resolved]
  - Dyspnoea [Recovered/Resolved]
  - Pain [Not Recovered/Not Resolved]
  - Nasal congestion [Not Recovered/Not Resolved]
  - Influenza like illness [Not Recovered/Not Resolved]

NARRATIVE: CASE EVENT DATE: 20190331
